FAERS Safety Report 21895933 (Version 1)
Quarter: 2023Q1

REPORT INFORMATION
  Report Type: Spontaneous
  Country: DE (occurrence: DE)
  Receive Date: 20230123
  Receipt Date: 20230123
  Transmission Date: 20230418
  Serious: Yes (Other)
  Sender: FDA-Public Use
  Company Number: DE-EMBRYOTOX-202107754

PATIENT
  Age: 1 Day
  Sex: Female
  Weight: 2.7 kg

DRUGS (2)
  1. METOPROLOL [Suspect]
     Active Substance: METOPROLOL
     Indication: Foetal exposure during pregnancy
     Dosage: (MATERNAL DOSE: 50 MG, QD, 50 [MG/D ])
     Route: 064
     Dates: start: 20201222, end: 20211002
  2. CYTOTEC [Concomitant]
     Active Substance: MISOPROSTOL
     Indication: Foetal exposure during pregnancy
     Dosage: (MATERNAL DOSE: UNK)
     Route: 064

REACTIONS (2)
  - Small for dates baby [Unknown]
  - Foetal exposure during pregnancy [Unknown]

NARRATIVE: CASE EVENT DATE: 20211001
